FAERS Safety Report 9082590 (Version 1)
Quarter: 2013Q1

REPORT INFORMATION
  Report Type: Report from Study
  Country: US (occurrence: US)
  Receive Date: 20130131
  Receipt Date: 20130131
  Transmission Date: 20140127
  Serious: No
  Sender: FDA-Public Use
  Company Number: US-ABBOTT-12P-163-0991783-00

PATIENT
  Age: 53 Year
  Sex: Male

DRUGS (7)
  1. HUMIRA [Suspect]
     Indication: CROHN^S DISEASE
     Dates: start: 20120823
  2. CELEXA [Concomitant]
     Indication: DEPRESSION
  3. BUSPIRONE [Concomitant]
     Indication: DEPRESSION
  4. PROTONIX [Concomitant]
     Indication: DYSPEPSIA
  5. PROTONIX [Concomitant]
     Indication: GASTROOESOPHAGEAL REFLUX DISEASE
  6. PREDNISONE [Concomitant]
     Indication: PRODUCT USED FOR UNKNOWN INDICATION
     Dosage: 5MG TAPERED DOWN FROM 8-5MG TABLETS DAILY
  7. DILAUDID [Concomitant]
     Indication: PAIN
     Dosage: 2MG AS NEEDED
     Dates: start: 201203

REACTIONS (3)
  - Wrong technique in drug usage process [Recovered/Resolved]
  - Injection site pain [Recovered/Resolved]
  - Incorrect dose administered [Recovered/Resolved]
